FAERS Safety Report 6059025-5 (Version None)
Quarter: 2009Q1

REPORT INFORMATION
  Report Type: 
  Country: None (occurrence: None)
  Receive Date: 20090130
  Receipt Date: 20090119
  Transmission Date: 20090719
  Serious: Yes (Hospitalization)
  Sender: FDA-Public Use
  Company Number: B0549838A

PATIENT
  Age: 87 Year
  Sex: Male

DRUGS (10)
  1. AVANDAMET [Suspect]
     Route: 048
     Dates: start: 20080401, end: 20081124
  2. AUGMENTIN '125' [Suspect]
     Indication: URINARY TRACT INFECTION
     Route: 048
     Dates: start: 20081022, end: 20081030
  3. TAHOR [Concomitant]
     Dosage: 10MG PER DAY
     Route: 048
     Dates: end: 20081127
  4. SEROPLEX [Concomitant]
     Route: 048
     Dates: start: 20081112, end: 20081128
  5. SERESTA [Concomitant]
  6. PIASCLEDINE [Concomitant]
  7. SIBELIUM [Concomitant]
  8. OMIX [Concomitant]
  9. RYTHMOL [Concomitant]
  10. STABLON [Concomitant]
     Dates: end: 20081112

REACTIONS (9)
  - ABDOMINAL PAIN UPPER [None]
  - CARDIAC FAILURE [None]
  - DIARRHOEA [None]
  - GASTROINTESTINAL DISORDER [None]
  - GENERAL PHYSICAL HEALTH DETERIORATION [None]
  - HEPATIC STEATOSIS [None]
  - HEPATITIS CHOLESTATIC [None]
  - NAUSEA [None]
  - VOMITING [None]
